FAERS Safety Report 5424262-7 (Version None)
Quarter: 2007Q3

REPORT INFORMATION
  Report Type: 
  Country: None (occurrence: None)
  Receive Date: 20070731
  Receipt Date: 20070601
  Transmission Date: 20080115
  Serious: No
  Sender: FDA-Public Use
  Company Number: US200706000523

PATIENT
  Age: 65 Year
  Sex: Male

DRUGS (7)
  1. BYETTA [Suspect]
     Indication: TYPE 2 DIABETES MELLITUS
     Dosage: 5 UG, SUBCUTANEOUS, 10 UG, SUBCUTANEOUS, 5 UG, 2/D, SUBCUTANEOUS, 10 UG, 2/D, SUBCUTANEOUS
     Route: 058
     Dates: start: 20060101, end: 20060101
  2. BYETTA [Suspect]
     Indication: TYPE 2 DIABETES MELLITUS
     Dosage: 5 UG, SUBCUTANEOUS, 10 UG, SUBCUTANEOUS, 5 UG, 2/D, SUBCUTANEOUS, 10 UG, 2/D, SUBCUTANEOUS
     Route: 058
     Dates: start: 20060101, end: 20060101
  3. BYETTA [Suspect]
     Indication: TYPE 2 DIABETES MELLITUS
     Dosage: 5 UG, SUBCUTANEOUS, 10 UG, SUBCUTANEOUS, 5 UG, 2/D, SUBCUTANEOUS, 10 UG, 2/D, SUBCUTANEOUS
     Route: 058
     Dates: start: 20070522, end: 20070531
  4. BYETTA [Suspect]
     Indication: TYPE 2 DIABETES MELLITUS
     Dosage: 5 UG, SUBCUTANEOUS, 10 UG, SUBCUTANEOUS, 5 UG, 2/D, SUBCUTANEOUS, 10 UG, 2/D, SUBCUTANEOUS
     Route: 058
     Dates: start: 20070601
  5. GLIPIZIDE [Concomitant]
  6. METFORMIN HCL [Concomitant]
  7. ACTOS [Concomitant]

REACTIONS (2)
  - BLOOD GLUCOSE DECREASED [None]
  - BLOOD GLUCOSE INCREASED [None]
